FAERS Safety Report 5366851-4 (Version None)
Quarter: 2007Q2

REPORT INFORMATION
  Report Type: 
  Country: None (occurrence: None)
  Receive Date: 20070622
  Receipt Date: 20061003
  Transmission Date: 20071010
  Serious: No
  Sender: FDA-Public Use
  Company Number: US-ASTRAZENECA-2006UW19192

PATIENT
  Sex: Male
  Weight: 83.7 kg

DRUGS (1)
  1. RHINOCORT [Suspect]
     Indication: SINUS CONGESTION
     Route: 045

REACTIONS (4)
  - INSOMNIA [None]
  - NERVOUSNESS [None]
  - RESTLESSNESS [None]
  - URINARY INCONTINENCE [None]
